FAERS Safety Report 9912075 (Version 1)
Quarter: 2014Q1

REPORT INFORMATION
  Report Type: Report from Study
  Country: RU (occurrence: RU)
  Receive Date: 20140219
  Receipt Date: 20140219
  Transmission Date: 20141002
  Serious: Yes (Other)
  Sender: FDA-Public Use
  Company Number: PHHY2014RU020336

PATIENT
  Age: 52 Year
  Sex: Female

DRUGS (4)
  1. ACLASTA [Suspect]
     Dosage: UNK UKN, UNK
     Route: 042
     Dates: start: 20131121
  2. VITAMIN D [Concomitant]
     Dosage: UNK UKN, UNK
  3. OSTEOGENON [Concomitant]
     Dosage: 4 DF, UNK
  4. VIGANTOL//COLECALCIFEROL [Concomitant]
     Dosage: 800 MG, UNK

REACTIONS (4)
  - Pathological fracture [Recovering/Resolving]
  - Lower limb fracture [Recovering/Resolving]
  - Pain in extremity [Not Recovered/Not Resolved]
  - Arthritis [Unknown]
